FAERS Safety Report 24007034 (Version 2)
Quarter: 2024Q3

REPORT INFORMATION
  Report Type: Report from Study
  Country: US (occurrence: US)
  Receive Date: 20240624
  Receipt Date: 20240813
  Transmission Date: 20241017
  Serious: No
  Sender: APELLIS PHARMACEUTICALS
  Company Number: US-APELLIS PHARMACEUTICALS-APL-2024-003594

PATIENT

DRUGS (8)
  1. PEGCETACOPLAN [Suspect]
     Active Substance: PEGCETACOPLAN
     Indication: Paroxysmal nocturnal haemoglobinuria
     Dosage: 1080 MILLIGRAM, TWICE WEEKLY?INFUSE 1080 MG SUBCUTANEOUSLY TWICE WEEKLY AS DIRECTED
     Route: 058
     Dates: start: 20220713
  2. VITAMINS NOS [Concomitant]
     Active Substance: VITAMINS
     Indication: Product used for unknown indication
     Dosage: UNK
  3. IRON [Concomitant]
     Active Substance: IRON
     Indication: Product used for unknown indication
     Dosage: UNK
  4. CYANOCOBALAMIN [Concomitant]
     Active Substance: CYANOCOBALAMIN
     Indication: Product used for unknown indication
     Dosage: UNK
  5. CALCIUM [Concomitant]
     Active Substance: CALCIUM
     Indication: Product used for unknown indication
     Dosage: UNK
  6. PROBIOTICS NOS [Concomitant]
     Active Substance: PROBIOTICS NOS
     Indication: Product used for unknown indication
     Dosage: UNK
  7. RITUXAN [Concomitant]
     Active Substance: RITUXIMAB
     Indication: Product used for unknown indication
     Dosage: UNK
  8. DOPTELET [Concomitant]
     Active Substance: AVATROMBOPAG MALEATE
     Indication: Product used for unknown indication
     Dosage: UNK

REACTIONS (8)
  - Pain [Unknown]
  - Intentional product use issue [Unknown]
  - Treatment noncompliance [Unknown]
  - Product dose omission issue [Unknown]
  - Brain fog [Unknown]
  - Headache [Unknown]
  - Dyspnoea [Unknown]
  - Back pain [Unknown]
